FAERS Safety Report 4339968-0 (Version None)
Quarter: 2004Q2

REPORT INFORMATION
  Report Type: 
  Country: None (occurrence: None)
  Receive Date: 20040414
  Receipt Date: 20040329
  Transmission Date: 20050107
  Serious: Yes (Hospitalization)
  Sender: FDA-Public Use
  Company Number: A03200400975

PATIENT
  Sex: Female

DRUGS (1)
  1. AMBIEN [Suspect]
     Indication: ANAESTHETIC PREMEDICATION
     Dosage: ORAL
     Route: 048
     Dates: start: 20020801, end: 20020801

REACTIONS (7)
  - AMNESIA [None]
  - CONVULSION [None]
  - COORDINATION ABNORMAL [None]
  - DYSPNOEA [None]
  - OBSTRUCTIVE AIRWAYS DISORDER [None]
  - SWOLLEN TONGUE [None]
  - URTICARIA [None]
